FAERS Safety Report 21354236 (Version 1)
Quarter: 2022Q3

REPORT INFORMATION
  Report Type: Spontaneous
  Country: AU (occurrence: AU)
  Receive Date: 20220920
  Receipt Date: 20220920
  Transmission Date: 20221027
  Serious: Yes (Other)
  Sender: FDA-Public Use
  Company Number: AU-BoehringerIngelheim-2022-BI-192006

PATIENT
  Age: 65 Year
  Sex: Male

DRUGS (6)
  1. MICARDIS [Suspect]
     Active Substance: TELMISARTAN
     Indication: Product used for unknown indication
  2. ASPIRIN [Suspect]
     Active Substance: ASPIRIN
     Indication: Product used for unknown indication
  3. GLIVEC [Suspect]
     Active Substance: IMATINIB MESYLATE
     Indication: Product used for unknown indication
     Dates: start: 20201030, end: 20210415
  4. NILOTINIB [Suspect]
     Active Substance: NILOTINIB
     Indication: Product used for unknown indication
     Dates: start: 20160616, end: 202010
  5. DASATINIB [Suspect]
     Active Substance: DASATINIB
     Indication: Product used for unknown indication
     Dates: start: 202104
  6. EZETIMIBE [Suspect]
     Active Substance: EZETIMIBE
     Indication: Chronic myeloid leukaemia

REACTIONS (7)
  - Myocardial ischaemia [Unknown]
  - Arthralgia [Unknown]
  - Bone pain [Unknown]
  - Cognitive disorder [Unknown]
  - Disturbance in attention [Unknown]
  - Lethargy [Unknown]
  - Pain [Unknown]
